FAERS Safety Report 20016225 (Version 1)
Quarter: 2021Q4

REPORT INFORMATION
  Report Type: Spontaneous
  Country: US (occurrence: None)
  Receive Date: 20211103
  Receipt Date: 20211103
  Transmission Date: 20220303
  Serious: Yes (Hospitalization)
  Sender: FDA-Public Use
  Company Number: None

PATIENT
  Age: 56 Year
  Sex: Female

DRUGS (1)
  1. STELARA [Suspect]
     Active Substance: USTEKINUMAB
     Indication: Crohn^s disease
     Dosage: OTHER QUANTITY : 1 SYR;?OTHER FREQUENCY : Q8WK;?
     Route: 058
     Dates: start: 20210918

REACTIONS (1)
  - Hernia repair [None]

NARRATIVE: CASE EVENT DATE: 20211029
